FAERS Safety Report 11093080 (Version 1)
Quarter: 2015Q2

REPORT INFORMATION
  Report Type: Spontaneous
  Country: US (occurrence: None)
  Receive Date: 20150428
  Receipt Date: 20150428
  Transmission Date: 20150821
  Serious: Yes (Other)
  Sender: FDA-Public Use
  Company Number: PHEH2014US015288

PATIENT
  Age: 54 Year
  Sex: Male
  Weight: 73 kg

DRUGS (5)
  1. GILENYA [Suspect]
     Active Substance: FINGOLIMOD HYDROCHLORIDE
     Indication: MULTIPLE SCLEROSIS
     Route: 048
     Dates: start: 20140716, end: 20140716
  2. BACLOFEN. [Concomitant]
     Active Substance: BACLOFEN
  3. NUVIGIL [Concomitant]
     Active Substance: ARMODAFINIL
  4. OXTELLAR (OXCARBAZEPINE) [Concomitant]
  5. PAXIL/PAROXETINE HYDROCHLORIDE (PAROXETINE HYDROCHLORIDE) [Concomitant]

REACTIONS (7)
  - Blood glucose increased [None]
  - Heart rate decreased [None]
  - Red cell distribution width increased [None]
  - Monocyte count increased [None]
  - Atrioventricular block second degree [None]
  - Mean cell haemoglobin concentration increased [None]
  - Blood pressure increased [None]

NARRATIVE: CASE EVENT DATE: 20140716
